FAERS Safety Report 9147902 (Version 2)
Quarter: 2013Q1

REPORT INFORMATION
  Report Type: Spontaneous
  Country: US (occurrence: US)
  Receive Date: 20130305
  Receipt Date: 20130318
  Transmission Date: 20140127
  Serious: Yes (Hospitalization, Other)
  Sender: FDA-Public Use
  Company Number: US-RB-050559-13

PATIENT
  Age: 42 Year
  Sex: Male

DRUGS (1)
  1. SUBOXONE TABLET [Suspect]
     Indication: DRUG DEPENDENCE
     Dosage: DOSING DETAILS UNKNOWN
     Route: 060
     Dates: start: 2008, end: 2009

REACTIONS (4)
  - Convulsion [Recovered/Resolved]
  - Blood pressure abnormal [Recovered/Resolved]
  - Communication disorder [Recovered/Resolved]
  - Underdose [Recovered/Resolved]
